FAERS Safety Report 21486528 (Version 1)
Quarter: 2022Q4

REPORT INFORMATION
  Report Type: Spontaneous
  Country: US (occurrence: None)
  Receive Date: 20221020
  Receipt Date: 20221020
  Transmission Date: 20230112
  Serious: No
  Sender: FDA-Public Use
  Company Number: None

PATIENT
  Age: 38 Year
  Sex: Female
  Weight: 144 kg

DRUGS (1)
  1. MOUNJARO [Suspect]
     Active Substance: TIRZEPATIDE
     Indication: Type 2 diabetes mellitus
     Dosage: OTHER QUANTITY : 1 INJECTION(S);?OTHER FREQUENCY : WEEKLY;?
     Route: 058
     Dates: start: 20221019

REACTIONS (4)
  - Bone pain [None]
  - Lymph node pain [None]
  - Myalgia [None]
  - Oropharyngeal pain [None]

NARRATIVE: CASE EVENT DATE: 20221019
